FAERS Safety Report 5752348-6 (Version None)
Quarter: 2008Q2

REPORT INFORMATION
  Report Type: 
  Country: None (occurrence: None)
  Receive Date: 20080529
  Receipt Date: 20080523
  Transmission Date: 20081010
  Serious: Yes (Hospitalization)
  Sender: FDA-Public Use
  Company Number: IE-BRISTOL-MYERS SQUIBB COMPANY-14207765

PATIENT

DRUGS (1)
  1. ABILIFY [Suspect]

REACTIONS (2)
  - GASTROSTOMY TUBE INSERTION [None]
  - HOSPITALISATION [None]
